FAERS Safety Report 9360848 (Version 1)
Quarter: 2013Q2

REPORT INFORMATION
  Report Type: Spontaneous
  Country: US (occurrence: None)
  Receive Date: 20130620
  Receipt Date: 20130620
  Transmission Date: 20140414
  Serious: Yes (Life-Threatening, Disabling, Other)
  Sender: FDA-Public Use
  Company Number: None

PATIENT
  Age: 45 Year
  Sex: Female
  Weight: 63.5 kg

DRUGS (9)
  1. CYMBALTA 30MG [Suspect]
     Indication: PAIN
     Route: 048
     Dates: start: 200811, end: 201301
  2. LYRICA 50MG TO 100 MGS DAILY EVERGREEN PHARMACY [Concomitant]
  3. NUCYNTA [Concomitant]
  4. FISH OIL [Concomitant]
  5. DAILY SUPPLEMENT W B/FOLATE [Concomitant]
  6. VIT D [Concomitant]
  7. CALCIUM [Concomitant]
  8. BIOTIN [Concomitant]
  9. WHEY PROTEIN ISOLATE POWDER [Concomitant]

REACTIONS (5)
  - Fibromyalgia [None]
  - Muscle spasms [None]
  - Headache [None]
  - Neuropathy peripheral [None]
  - Injection site pain [None]
